FAERS Safety Report 16060638 (Version 2)
Quarter: 2019Q1

REPORT INFORMATION
  Report Type: Spontaneous
  Country: PL (occurrence: PL)
  Receive Date: 20190312
  Receipt Date: 20190330
  Transmission Date: 20190418
  Serious: Yes (Other)
  Sender: FDA-Public Use
  Company Number: PL-AUROBINDO-AUR-APL-2019-012303

PATIENT

DRUGS (4)
  1. PREDNISONE. [Suspect]
     Active Substance: PREDNISONE
     Indication: SKIN LESION
     Dosage: 20 MILLIGRAM
     Route: 048
  2. AMOXICILLIN+CLAVULANIC ACID [Suspect]
     Active Substance: AMOXICILLIN\CLAVULANIC ACID
     Indication: SKIN LESION
     Dosage: 1 GRAM, TWO TIMES A DAY(1 G, BID (2/DAY))
     Route: 065
  3. RUPATADINE [Suspect]
     Active Substance: RUPATADINE
     Indication: SKIN LESION
     Dosage: UNK
     Route: 065
  4. CLOBETASOL PROPIONATE. [Suspect]
     Active Substance: CLOBETASOL PROPIONATE
     Indication: SKIN LESION
     Dosage: 1 DOSAGE FORM, ONCE A DAY1 DF, QD (1/DAY)
     Route: 061

REACTIONS (7)
  - Skin disorder [Unknown]
  - Condition aggravated [Recovered/Resolved]
  - Pyrexia [Recovered/Resolved]
  - Skin lesion [Recovered/Resolved]
  - Papule [Unknown]
  - Skin haemorrhage [Unknown]
  - Tonsillar hypertrophy [Recovered/Resolved]
